FAERS Safety Report 9467301 (Version 2)
Quarter: 2013Q3

REPORT INFORMATION
  Report Type: Report from Study
  Country: US (occurrence: US)
  Receive Date: 20130821
  Receipt Date: 20130821
  Transmission Date: 20140515
  Serious: Yes (Hospitalization)
  Sender: FDA-Public Use
  Company Number: US-ROCHE-1242015

PATIENT
  Age: 47 Year
  Sex: Female
  Weight: 58.11 kg

DRUGS (2)
  1. XELODA [Suspect]
     Indication: BREAST CANCER METASTATIC
     Route: 048
     Dates: start: 20130601
  2. XELODA [Suspect]
     Route: 048
     Dates: start: 20130603

REACTIONS (6)
  - Cardiospasm [Not Recovered/Not Resolved]
  - Angioplasty [Not Recovered/Not Resolved]
  - Chest pain [Not Recovered/Not Resolved]
  - Blister [Not Recovered/Not Resolved]
  - Feeling hot [Not Recovered/Not Resolved]
  - Skin discolouration [Not Recovered/Not Resolved]
